FAERS Safety Report 8491001 (Version 2)
Quarter: 2012Q4

REPORT INFORMATION
  Report Type: 
  Country: ES (occurrence: ES)
  Receive Date: 20120403
  Receipt Date: 20120927
  Transmission Date: 20130627
  Serious: Yes (Hospitalization)
  Sender: FDA-Public Use
  Company Number: ES-ELI_LILLY_AND_COMPANY-ES201203009144

PATIENT
  Sex: Female
  Weight: 50 kg

DRUGS (5)
  1. FORSTEO [Suspect]
     Indication: OSTEOPOROSIS
     Dosage: 20 ug, qd
     Route: 058
     Dates: start: 20111213
  2. METFORMINA [Concomitant]
     Indication: DIABETES MELLITUS
     Dosage: 1 DF, qd
     Route: 048
  3. IDEOS [Concomitant]
     Indication: OSTEOPOROSIS
     Dosage: 1 DF, qd
     Route: 048
  4. ARCOXIA [Concomitant]
     Indication: OSTEOPOROSIS
     Dosage: 1 DF, qd
     Route: 048
  5. CONDROSULF [Concomitant]
     Indication: OSTEOPOROSIS
     Dosage: 2 DF, qd
     Route: 048

REACTIONS (1)
  - Intestinal obstruction [Recovering/Resolving]
